FAERS Safety Report 10063243 (Version 1)
Quarter: 2014Q2

REPORT INFORMATION
  Report Type: Spontaneous
  Country: US (occurrence: US)
  Receive Date: 20140407
  Receipt Date: 20140407
  Transmission Date: 20141212
  Serious: Yes (Life-Threatening)
  Sender: FDA-Public Use
  Company Number: US-ASTRAZENECA-2014SE23805

PATIENT
  Age: 62 Year
  Sex: Female
  Weight: 63.5 kg

DRUGS (4)
  1. SYMBICORT [Suspect]
     Indication: ASTHMA
     Dosage: 80/4.5 MCG, 1 PUFF, DAILY
     Route: 055
  2. PROAIR [Concomitant]
     Indication: ASTHMA
     Dosage: UNKNOWN UNK
  3. LYRICA [Concomitant]
     Indication: DIABETES MELLITUS
  4. LYRICA [Concomitant]
     Indication: NEURALGIA

REACTIONS (5)
  - Diabetic coma [Unknown]
  - Diabetes mellitus [Unknown]
  - Body height decreased [Unknown]
  - Circumstance or information capable of leading to medication error [Unknown]
  - Intentional product misuse [Unknown]
